FAERS Safety Report 17984511 (Version 1)
Quarter: 2020Q3

REPORT INFORMATION
  Report Type: Spontaneous
  Country: IN (occurrence: IN)
  Receive Date: 20200706
  Receipt Date: 20200706
  Transmission Date: 20201103
  Serious: Yes (Death, Hospitalization)
  Sender: FDA-Public Use
  Company Number: IN-MYLANLABS-2020M1061829

PATIENT
  Age: 73 Year
  Sex: Female

DRUGS (1)
  1. HERTRAZ [Suspect]
     Active Substance: TRASTUZUMAB
     Indication: BREAST CANCER METASTATIC
     Dosage: 440 MILLIGRAM, Q3W
     Route: 042
     Dates: start: 20190107

REACTIONS (3)
  - Breast cancer metastatic [Fatal]
  - Cardiac arrest [Fatal]
  - Disease progression [Fatal]
